FAERS Safety Report 5672760-3 (Version None)
Quarter: 2008Q1

REPORT INFORMATION
  Report Type: 
  Country: None (occurrence: None)
  Receive Date: 20080319
  Receipt Date: 20070924
  Transmission Date: 20080703
  Serious: No
  Sender: FDA-Public Use
  Company Number: US-KINGPHARMUSA00001-K200701283

PATIENT

DRUGS (2)
  1. ALTACE [Suspect]
     Indication: HYPERTENSION
     Route: 048
     Dates: start: 20070701, end: 20070801
  2. KLONOPIN [Concomitant]
     Indication: ANXIETY
     Dosage: UNK, PRN

REACTIONS (3)
  - BALANCE DISORDER [None]
  - DIZZINESS [None]
  - VISION BLURRED [None]
